FAERS Safety Report 8637361 (Version 2)
Quarter: 2013Q1

REPORT INFORMATION
  Report Type: Spontaneous
  Country: US (occurrence: None)
  Receive Date: 20120614
  Receipt Date: 20121210
  Transmission Date: 20140127
  Serious: Yes (Other)
  Sender: FDA-Public Use
  Company Number: MC201200300

PATIENT
  Sex: 0
  Weight: 70.8 kg

DRUGS (1)
  1. ANGIOMAX [Suspect]
     Dosage: BOLUS
     Route: 042

REACTIONS (2)
  - VENTRICULAR TACHYCARDIA [None]
  - COAGULATION TIME PROLONGED [None]
